FAERS Safety Report 8452848-4 (Version None)
Quarter: 2012Q2

REPORT INFORMATION
  Report Type: 
  Country: None (occurrence: None)
  Receive Date: 20120620
  Receipt Date: 20120430
  Transmission Date: 20120825
  Serious: No
  Sender: FDA-Public Use
  Company Number: US-VERTEX PHARMACEUTICALS INC.-AE-2012-006252

PATIENT
  Sex: Female
  Weight: 106.24 kg

DRUGS (7)
  1. PEGASYS [Concomitant]
     Indication: HEPATITIS C
     Route: 058
     Dates: start: 20120409
  2. INDERAL [Concomitant]
     Indication: PAIN
     Route: 048
  3. LEVOTHYROXINE SODIUM [Concomitant]
     Indication: THYROID DISORDER
     Route: 048
  4. ABILIFY [Concomitant]
     Indication: DEPRESSION
     Route: 048
  5. INCIVEK [Suspect]
     Indication: HEPATITIS C
     Route: 048
     Dates: start: 20120409
  6. RIBAVIRIN [Concomitant]
     Indication: HEPATITIS C
     Dates: start: 20120409
  7. AMBIEN [Concomitant]
     Indication: SLEEP DISORDER
     Route: 048

REACTIONS (4)
  - DIZZINESS [None]
  - AGITATION [None]
  - FATIGUE [None]
  - INJECTION SITE REACTION [None]
